FAERS Safety Report 18366655 (Version 2)
Quarter: 2023Q4

REPORT INFORMATION
  Report Type: Spontaneous
  Country: US (occurrence: US)
  Receive Date: 20201009
  Receipt Date: 20231009
  Transmission Date: 20240110
  Serious: No
  Sender: FDA-Public Use
  Company Number: US-AMNEAL PHARMACEUTICALS-2020-AMRX-00722

PATIENT

DRUGS (3)
  1. ACETAMINOPHEN\HYDROCODONE [Suspect]
     Active Substance: ACETAMINOPHEN\HYDROCODONE
     Indication: Pain
     Dosage: 10 MILLIGRAM, UNK
     Route: 065
  2. ACETAMINOPHEN\HYDROCODONE [Suspect]
     Active Substance: ACETAMINOPHEN\HYDROCODONE
     Indication: Spinal stenosis
  3. ACETAMINOPHEN\HYDROCODONE [Suspect]
     Active Substance: ACETAMINOPHEN\HYDROCODONE
     Indication: Arthritis

REACTIONS (13)
  - Tinnitus [Recovered/Resolved]
  - Therapeutic product effect incomplete [Unknown]
  - Therapeutic product effect variable [Unknown]
  - Blood pressure increased [Recovered/Resolved]
  - Abdominal distension [Recovered/Resolved]
  - Illness [Unknown]
  - Decreased appetite [Unknown]
  - Therapeutic product effect delayed [Unknown]
  - Reaction to excipient [Unknown]
  - Headache [Unknown]
  - Somnolence [Unknown]
  - Gastrointestinal motility disorder [Recovered/Resolved]
  - Fatigue [Unknown]
